FAERS Safety Report 23363278 (Version 2)
Quarter: 2024Q1

REPORT INFORMATION
  Report Type: Spontaneous
  Country: US (occurrence: US)
  Receive Date: 20240103
  Receipt Date: 20240126
  Transmission Date: 20240410
  Serious: No
  Sender: FDA-Public Use
  Company Number: US-Eisai Medical Research-EC-2023-138572

PATIENT
  Age: 86 Year
  Sex: Male
  Weight: 75.9 kg

DRUGS (6)
  1. LEQEMBI [Suspect]
     Active Substance: LECANEMAB-IRMB
     Indication: Dementia Alzheimer^s type
     Dosage: DOSE UNKNOWN
     Route: 042
     Dates: start: 20230411
  2. ARICEPT [Concomitant]
     Active Substance: DONEPEZIL HYDROCHLORIDE
     Indication: Dementia Alzheimer^s type
     Route: 048
  3. GEMTESA [Concomitant]
     Active Substance: VIBEGRON
     Indication: Bladder disorder
     Dosage: DOSE AND FREQUENCY UNKNOWN
     Route: 065
  4. NUEDEXTA [Concomitant]
     Active Substance: DEXTROMETHORPHAN HYDROBROMIDE\QUINIDINE SULFATE
     Indication: Mood altered
     Dosage: DOSE UNKNOWN
     Route: 065
     Dates: start: 202212
  5. DULOXETINE [Concomitant]
     Active Substance: DULOXETINE
     Indication: Anxiety
     Dosage: DOSE UNKNOWN
     Route: 065
  6. DONEPEZIL [Concomitant]
     Active Substance: DONEPEZIL

REACTIONS (18)
  - Aggression [Recovering/Resolving]
  - Fatigue [Recovered/Resolved]
  - Crying [Recovering/Resolving]
  - Screaming [Recovering/Resolving]
  - Hypoacusis [Recovering/Resolving]
  - Migraine [Recovered/Resolved]
  - Pain [Recovered/Resolved]
  - Muscular weakness [Recovering/Resolving]
  - Tremor [Recovered/Resolved]
  - Headache [Recovering/Resolving]
  - Chills [Recovered/Resolved]
  - Anger [Not Recovered/Not Resolved]
  - Arthralgia [Recovered/Resolved]
  - Depressed mood [Recovered/Resolved]
  - Productive cough [Recovering/Resolving]
  - Fall [Recovering/Resolving]
  - Face injury [Recovering/Resolving]
  - Contusion [Recovering/Resolving]

NARRATIVE: CASE EVENT DATE: 20230401
